FAERS Safety Report 8794648 (Version 2)
Quarter: 2014Q1

REPORT INFORMATION
  Report Type: Spontaneous
  Country: US (occurrence: US)
  Receive Date: 20120917
  Receipt Date: 20140115
  Transmission Date: 20141002
  Serious: No
  Sender: FDA-Public Use
  Company Number: US-ASTRAZENECA-2012SE65060

PATIENT
  Age: 92 Year
  Sex: Female
  Weight: 63 kg

DRUGS (2)
  1. SYMBICORT PMDI [Suspect]
     Indication: ASTHMA
     Dosage: 80/4.5 MCG, 1 PUFF, TWO TIMES A DAY
     Route: 055
     Dates: end: 2011
  2. SYMBICORT PMDI [Suspect]
     Indication: ASTHMA
     Dosage: 1 PUFF, TWO TIMES A DAY
     Route: 055

REACTIONS (5)
  - Eye disorder [Unknown]
  - Visual impairment [Unknown]
  - Macular degeneration [Unknown]
  - Hearing impaired [Unknown]
  - Intentional drug misuse [Unknown]
